FAERS Safety Report 7713641-0 (Version None)
Quarter: 2011Q3

REPORT INFORMATION
  Report Type: 
  Country: None (occurrence: None)
  Receive Date: 20110826
  Receipt Date: 20110817
  Transmission Date: 20111222
  Serious: Yes (Hospitalization)
  Sender: FDA-Public Use
  Company Number: PHHY2011SE74645

PATIENT
  Age: 37 Year
  Sex: Female

DRUGS (2)
  1. FLOXACILLIN SODIUM [Suspect]
  2. BROMOCRIPTINE MESYLATE [Suspect]
     Indication: LACTATION INHIBITION THERAPY
     Dosage: 2.5 MG

REACTIONS (11)
  - MYOCARDIAL ISCHAEMIA [None]
  - DYSPNOEA [None]
  - BREAST ENGORGEMENT [None]
  - RASH [None]
  - STRESS CARDIOMYOPATHY [None]
  - ARTERIOSPASM CORONARY [None]
  - MASTITIS [None]
  - SWELLING FACE [None]
  - ELECTROCARDIOGRAM T WAVE INVERSION [None]
  - CHEST DISCOMFORT [None]
  - LEFT VENTRICULAR DYSFUNCTION [None]
